FAERS Safety Report 22287937 (Version 1)
Quarter: 2023Q2

REPORT INFORMATION
  Report Type: Spontaneous
  Country: US (occurrence: US)
  Receive Date: 20230505
  Receipt Date: 20230505
  Transmission Date: 20230722
  Serious: No
  Sender: FDA-Public Use
  Company Number: US-009507513-2304USA004650

PATIENT
  Age: 64 Year
  Sex: Male

DRUGS (5)
  1. NOXAFIL [Suspect]
     Active Substance: POSACONAZOLE
     Indication: Parasitic encephalitis
     Dosage: UNK
     Route: 048
  2. SULFAMETHOXAZOLE\TRIMETHOPRIM [Concomitant]
     Active Substance: SULFAMETHOXAZOLE\TRIMETHOPRIM
     Indication: Parasitic encephalitis
     Dosage: UNK
  3. MILTEFOSINE [Concomitant]
     Active Substance: MILTEFOSINE
     Indication: Parasitic encephalitis
     Dosage: UNK
  4. VORICONAZOLE [Concomitant]
     Active Substance: VORICONAZOLE
     Indication: Aspergillus infection
     Dosage: UNK
  5. AMPHOTERICIN B [Concomitant]
     Active Substance: AMPHOTERICIN B
     Indication: Parasitic encephalitis
     Dosage: UNK

REACTIONS (1)
  - Off label use [Unknown]
